FAERS Safety Report 23767718 (Version 2)
Quarter: 2024Q2

REPORT INFORMATION
  Report Type: Spontaneous
  Country: US (occurrence: US)
  Receive Date: 20240422
  Receipt Date: 20240616
  Transmission Date: 20240716
  Serious: Yes (Other)
  Sender: FDA-Public Use
  Company Number: US-BRISTOL-MYERS SQUIBB COMPANY-2024-062423

PATIENT
  Age: 82 Year
  Sex: Female
  Weight: 112.04 kg

DRUGS (2)
  1. REVLIMID [Suspect]
     Active Substance: LENALIDOMIDE
     Indication: Bone cancer
     Dosage: 14D ON 7D OFF OF 21 DAY CYCLE
     Route: 048
     Dates: start: 20240401
  2. REVLIMID [Suspect]
     Active Substance: LENALIDOMIDE
     Indication: Plasma cell myeloma

REACTIONS (7)
  - Asthenia [Recovering/Resolving]
  - Hypotension [Recovering/Resolving]
  - Back pain [Recovering/Resolving]
  - Abdominal pain [Recovering/Resolving]
  - Pneumonia [Recovering/Resolving]
  - Atelectasis [Recovering/Resolving]
  - Off label use [Unknown]
